FAERS Safety Report 10871115 (Version 1)
Quarter: 2015Q1

REPORT INFORMATION
  Report Type: Spontaneous
  Country: CH (occurrence: CH)
  Receive Date: 20150226
  Receipt Date: 20150226
  Transmission Date: 20150721
  Serious: Yes (Disabling)
  Sender: FDA-Public Use
  Company Number: CH-TEVA-538621ISR

PATIENT
  Age: 65 Year
  Sex: Male

DRUGS (2)
  1. LEFLUNOMID-MEPHA [Suspect]
     Active Substance: LEFLUNOMIDE
     Indication: RHEUMATOID ARTHRITIS
     Dosage: 1 DOSAGE FORMS DAILY;
     Route: 048
     Dates: start: 20141110, end: 20150202
  2. ARAVA [Suspect]
     Active Substance: LEFLUNOMIDE
     Route: 065
     Dates: end: 2014

REACTIONS (3)
  - Product substitution issue [Unknown]
  - Product substitution issue [None]
  - Joint swelling [Unknown]

NARRATIVE: CASE EVENT DATE: 201412
